FAERS Safety Report 5944333-6 (Version None)
Quarter: 2008Q4

REPORT INFORMATION
  Report Type: 
  Country: None (occurrence: None)
  Receive Date: 20081105
  Receipt Date: 20081024
  Transmission Date: 20090506
  Serious: Yes (Other)
  Sender: FDA-Public Use
  Company Number: 002#1#2008-00694

PATIENT

DRUGS (1)
  1. NEUPRO [Suspect]
     Indication: DRUG USE FOR UNKNOWN INDICATION
     Dosage: TRANSDERMAL
     Route: 062

REACTIONS (4)
  - CONDITION AGGRAVATED [None]
  - DIALYSIS [None]
  - HYPERTENSION [None]
  - RENAL FAILURE [None]
